FAERS Safety Report 4632645-8 (Version None)
Quarter: 2005Q2

REPORT INFORMATION
  Report Type: 
  Country: None (occurrence: None)
  Receive Date: 20050331
  Receipt Date: 20040910
  Transmission Date: 20051028
  Serious: Yes (Other)
  Sender: FDA-Public Use
  Company Number: 200414416BCC

PATIENT
  Sex: Female

DRUGS (1)
  1. ALEVE (CAPLET) [Suspect]
     Dosage: 440 MG, ONCE, ORAL
     Route: 048

REACTIONS (5)
  - ANGIONEUROTIC OEDEMA [None]
  - PARAESTHESIA [None]
  - STOMACH DISCOMFORT [None]
  - SWELLING FACE [None]
  - THROAT TIGHTNESS [None]
